FAERS Safety Report 6614242-8 (Version None)
Quarter: 2010Q1

REPORT INFORMATION
  Report Type: 
  Country: None (occurrence: None)
  Receive Date: 20100304
  Receipt Date: 20100218
  Transmission Date: 20100710
  Serious: Yes (Hospitalization, Other)
  Sender: FDA-Public Use
  Company Number: US-ELI_LILLY_AND_COMPANY-US201002005525

PATIENT
  Sex: Female

DRUGS (16)
  1. FORTEO [Suspect]
     Indication: OSTEOPOROSIS
     Dosage: 20 UG, DAILY (1/D)
     Dates: start: 20090101
  2. COUMADIN [Concomitant]
     Dosage: 3 MG, DAILY (1/D)
     Dates: start: 20030101
  3. BUMETANIDE [Concomitant]
     Dosage: 2 MG, DAILY (1/D)
     Dates: start: 20100201
  4. SPIRIVA [Concomitant]
     Dosage: 18 UG, DAILY (1/D)
     Dates: start: 20100201
  5. BYSTOLIC [Concomitant]
     Dosage: 2.5 MG, DAILY (1/D)
     Dates: start: 20100201
  6. TEKTURNA /01763601/ [Concomitant]
     Dosage: 300 MG, DAILY (1/D)
     Dates: start: 20100201
  7. VICODIN [Concomitant]
     Dosage: UNK, AS NEEDED
     Dates: start: 20070101
  8. PREDNISOLONE [Concomitant]
     Dosage: 4 MG, DAILY (1/D)
     Dates: start: 19920101
  9. PROTONIX [Concomitant]
     Dosage: 40 MG, DAILY (1/D)
     Dates: start: 20070101
  10. VITAMIN B6 [Concomitant]
     Dosage: 300 MG, DAILY (1/D)
     Dates: start: 19920101
  11. FOLIC ACID [Concomitant]
     Dosage: 400 MG, DAILY (1/D)
     Dates: start: 19920101
  12. METHOTREXATE [Concomitant]
     Dosage: 26.5 MG, DAILY (1/D)
     Dates: start: 19920101
  13. MULTI-VIT [Concomitant]
     Dosage: UNK, DAILY (1/D)
     Dates: start: 19920101
  14. MAGNESIUM [Concomitant]
     Dosage: 400 MG, DAILY (1/D)
     Dates: start: 19920101
  15. CALCIUM [Concomitant]
     Dosage: 1200 MG, UNK
     Dates: start: 19920101
  16. VITAMIN D [Concomitant]
     Dosage: 800 MG, UNK
     Dates: start: 19920101

REACTIONS (1)
  - CARDIAC FAILURE CONGESTIVE [None]
